FAERS Safety Report 4302958-8 (Version None)
Quarter: 2004Q1

REPORT INFORMATION
  Report Type: 
  Country: None (occurrence: None)
  Receive Date: 20040220
  Receipt Date: 20040126
  Transmission Date: 20041129
  Serious: Yes (Hospitalization, Disabling, Other)
  Sender: FDA-Public Use
  Company Number: USA040157594

PATIENT
  Sex: Male

DRUGS (5)
  1. HUMALOG [Suspect]
     Indication: DIABETES MELLITUS
     Dosage: 12 U/ IN THE MORNING
     Dates: start: 20020101
  2. HUMULIN R [Suspect]
     Indication: DIABETES MELLITUS
     Dosage: 8U /2 DAY
     Dates: start: 19970101, end: 20020101
  3. HUMULIN N [Suspect]
     Indication: DIABETES MELLITUS
     Dosage: 26 U/2 DAY
     Dates: start: 19970101, end: 20020101
  4. LANTUS [Concomitant]
  5. AVANDIA [Concomitant]

REACTIONS (6)
  - BLINDNESS [None]
  - CEREBROVASCULAR ACCIDENT [None]
  - FOOT AMPUTATION [None]
  - GANGRENE [None]
  - RETINOPATHY [None]
  - WEIGHT INCREASED [None]
